FAERS Safety Report 7128399-6 (Version None)
Quarter: 2010Q4

REPORT INFORMATION
  Report Type: 
  Country: None (occurrence: None)
  Receive Date: 20101115
  Receipt Date: 20101029
  Transmission Date: 20110411
  Serious: Yes (Death, Other)
  Sender: FDA-Public Use
  Company Number: GER/UKI/10/0015845

PATIENT
  Age: 70 Year
  Sex: Female
  Weight: 26.4 kg

DRUGS (13)
  1. FLUCONAZOLE [Suspect]
     Indication: SYSTEMIC CANDIDA
     Dosage: ORAL
     Route: 048
     Dates: start: 20100111
  2. WARFARIN SODIUM [Suspect]
     Indication: PRODUCT USED FOR UNKNOWN INDICATION
     Dosage: ORAL
     Route: 048
  3. ATORVASTATIN [Concomitant]
  4. CALPOL (PARACETAMOL) [Concomitant]
  5. CODEINE [Concomitant]
  6. CALPOL (PARACETAMOL) [Concomitant]
  7. CODEINE PHOSPHATE [Concomitant]
  8. COD LIVER OIL FORTIFIED TAB [Concomitant]
  9. ASCORBIC ACID [Concomitant]
  10. VITAMIN D [Concomitant]
  11. VITAMIN E [Concomitant]
  12. CO-AMOXICLAV (AUGMENTIN /00756801/) [Concomitant]
  13. FUROSEMIDE [Concomitant]

REACTIONS (39)
  - ANAL CANDIDIASIS [None]
  - AORTIC ARTERIOSCLEROSIS [None]
  - ARTERIOSCLEROSIS CORONARY ARTERY [None]
  - BRAIN COMPRESSION [None]
  - BRAIN OEDEMA [None]
  - CEREBRAL ARTERIOSCLEROSIS [None]
  - CEREBRAL HAEMORRHAGE [None]
  - CONTUSION [None]
  - CORONARY ARTERY STENOSIS [None]
  - DIZZINESS [None]
  - DRUG INTERACTION [None]
  - DRUG SCREEN POSITIVE [None]
  - EXCORIATION [None]
  - HAEMARTHROSIS [None]
  - HAEMORRHAGE [None]
  - HEPATIC FIBROSIS [None]
  - IMMUNE SYSTEM DISORDER [None]
  - INCORRECT DOSE ADMINISTERED [None]
  - INTERNATIONAL NORMALISED RATIO INCREASED [None]
  - JAUNDICE [None]
  - KIDNEY FIBROSIS [None]
  - LOWER RESPIRATORY TRACT INFECTION [None]
  - LUNG INFECTION [None]
  - MEMORY IMPAIRMENT [None]
  - NEPHROLITHIASIS [None]
  - POST THROMBOTIC SYNDROME [None]
  - PULMONARY FIBROSIS [None]
  - PULMONARY HYPERTENSION [None]
  - PULMONARY INFARCTION [None]
  - PULMONARY OEDEMA [None]
  - RENAL ABSCESS [None]
  - RENAL ARTERY ARTERIOSCLEROSIS [None]
  - RENAL ARTERY STENOSIS [None]
  - RENAL ARTERY THROMBOSIS [None]
  - RENAL ATROPHY [None]
  - RENAL INFARCT [None]
  - SCAR [None]
  - SKIN STRIAE [None]
  - SUBARACHNOID HAEMORRHAGE [None]
